FAERS Safety Report 22661473 (Version 1)
Quarter: 2023Q2

REPORT INFORMATION
  Report Type: Spontaneous
  Country: CA (occurrence: CA)
  Receive Date: 20230630
  Receipt Date: 20230630
  Transmission Date: 20230722
  Serious: Yes (Other)
  Sender: FDA-Public Use
  Company Number: CA-BRISTOL-MYERS SQUIBB COMPANY-2023-092137

PATIENT
  Age: 59 Year
  Sex: Female
  Weight: 101.9 kg

DRUGS (1)
  1. REVLIMID [Suspect]
     Active Substance: LENALIDOMIDE
     Indication: Plasma cell myeloma
     Dosage: DOSE : 2.5 MG EVERY OTHER DAY;     FREQ : 2 WEEKS ON, 2 WEEKS OFF AND THE CYCLE REPEATS
     Route: 048

REACTIONS (2)
  - End stage renal disease [Unknown]
  - Off label use [Unknown]
